FAERS Safety Report 11110955 (Version 1)
Quarter: 2015Q2

REPORT INFORMATION
  Report Type: Spontaneous
  Country: FR (occurrence: FR)
  Receive Date: 20150513
  Receipt Date: 20150513
  Transmission Date: 20150821
  Serious: Yes (Hospitalization)
  Sender: FDA-Public Use
  Company Number: FR-SA-2015SA058285

PATIENT
  Age: 22 Year
  Sex: Male

DRUGS (2)
  1. LEXOMIL [Suspect]
     Active Substance: BROMAZEPAM
     Dosage: LEXOMIL ROCHE TABLET STRIP, TABLET DIVISIBLE IN FOUR PARTS
     Route: 048
     Dates: start: 20150327
  2. STILNOX [Suspect]
     Active Substance: ZOLPIDEM TARTRATE
     Route: 048
     Dates: start: 20150327

REACTIONS (3)
  - Electrocardiogram repolarisation abnormality [Recovered/Resolved]
  - Sinus bradycardia [Recovered/Resolved]
  - Intentional overdose [Unknown]

NARRATIVE: CASE EVENT DATE: 20150327
